FAERS Safety Report 4426063-5 (Version None)
Quarter: 2004Q3

REPORT INFORMATION
  Report Type: 
  Country: None (occurrence: None)
  Receive Date: 20040811
  Receipt Date: 20040712
  Transmission Date: 20050211
  Serious: Yes (Other)
  Sender: FDA-Public Use
  Company Number: GBS040715232

PATIENT
  Age: 26 Year
  Sex: Female
  Weight: 89 kg

DRUGS (4)
  1. ZYPREXA [Suspect]
     Indication: AFFECT LABILITY
     Dosage: 10 MG DAY
     Dates: start: 20040514
  2. PAROXETINE HCL [Concomitant]
  3. ACAMPROSATE [Concomitant]
  4. METHOTREXATE [Concomitant]

REACTIONS (2)
  - DRUG INTERACTION [None]
  - LIVER FUNCTION TEST ABNORMAL [None]
